FAERS Safety Report 7368835-3 (Version None)
Quarter: 2011Q1

REPORT INFORMATION
  Report Type: 
  Country: None (occurrence: None)
  Receive Date: 20110304
  Receipt Date: 20101029
  Transmission Date: 20110831
  Serious: Yes (Death, Life-Threatening)
  Sender: FDA-Public Use
  Company Number: CLOF-1000732

PATIENT
  Age: 59 Year
  Sex: Female
  Weight: 86 kg

DRUGS (30)
  1. DIPHENHYDRAMINE HCL [Concomitant]
  2. HYDROMORPHONE (HYDROMORPHONE) [Concomitant]
  3. MAGNESIUM SULFATE [Concomitant]
  4. NICOTINE [Concomitant]
  5. PREDNISOLONE (PREDNISOLONE) EYE DROPS [Concomitant]
  6. PROCHLORPERAZINE MALEATE [Concomitant]
  7. VENLAFAXINE [Concomitant]
  8. LOPERAMIDE [Concomitant]
  9. DEXAMETHASONE (DEXAMETHASONE) [Concomitant]
  10. DROPERIDOL [Concomitant]
  11. FAMOTIDINE [Concomitant]
  12. MAGNESIUM HYDROXIDE TAB [Concomitant]
  13. VALACYCLOVIR [Concomitant]
  14. CLOFARABINE [Suspect]
     Indication: ACUTE MYELOID LEUKAEMIA
     Dosage: 40 MG/M2, QDX5, INTRAVENOUS
     Route: 042
     Dates: start: 20090928, end: 20091003
  15. ONDANSETRON [Concomitant]
  16. POTASSIUM CHLORIDE [Concomitant]
  17. CYTARABINE [Suspect]
     Indication: ACUTE MYELOID LEUKAEMIA
     Dosage: 1700 MG, QDX5, INTRAVENOUS
     Route: 042
     Dates: start: 20090930, end: 20091004
  18. ALTEPLASE (ALTEPLASE) [Concomitant]
  19. FUROSEMIDE [Concomitant]
  20. CIPROFLOXACIN [Concomitant]
  21. FAMOTIDINE [Concomitant]
  22. FLUCONAZOLE [Concomitant]
  23. ALLOPURINOL [Concomitant]
  24. LANSOPRAZOLE [Concomitant]
  25. POTASSIUM CHLORIDE [Concomitant]
  26. LORAZEPAM [Concomitant]
  27. POSCACONAZOLE (POSACONAZOLE) [Concomitant]
  28. PROCHLORPERAZINE MALEATE [Concomitant]
  29. SCOPOLAMINE [Concomitant]
  30. BACTRIM [Concomitant]

REACTIONS (10)
  - SEPTIC SHOCK [None]
  - RESPIRATORY FAILURE [None]
  - PANCYTOPENIA [None]
  - COAGULOPATHY [None]
  - STENOTROPHOMONAS INFECTION [None]
  - CLOSTRIDIUM DIFFICILE COLITIS [None]
  - PNEUMONIA BACTERIAL [None]
  - DELIRIUM [None]
  - HYPERNATRAEMIA [None]
  - PULMONARY OEDEMA [None]
